FAERS Safety Report 23975151 (Version 1)
Quarter: 2024Q2

REPORT INFORMATION
  Report Type: Spontaneous
  Country: JP (occurrence: JP)
  Receive Date: 20240614
  Receipt Date: 20240614
  Transmission Date: 20240716
  Serious: Yes (Other)
  Sender: FDA-Public Use
  Company Number: JP-OTSUKA-2024_004945

PATIENT
  Age: 33 Year
  Sex: Female

DRUGS (2)
  1. AJOVY [Suspect]
     Active Substance: FREMANEZUMAB-VFRM
     Indication: Migraine prophylaxis
     Dosage: 225 PER SHOT (ONCE EVERY 4 WEEKS), AUTOINJECTORS FOR S.C. INJECTION 225 MG
     Route: 058
     Dates: start: 20230905, end: 20230905
  2. AJOVY [Suspect]
     Active Substance: FREMANEZUMAB-VFRM
     Dosage: 675 PER SHOT (ONCE EVERY 12 WEEKS), AUTOINJECTORS FOR S.C. INJECTION 225 MG
     Route: 058
     Dates: start: 20231003, end: 20231003

REACTIONS (3)
  - Syphilis [Unknown]
  - Maternal exposure during pregnancy [Unknown]
  - Product dose omission issue [Unknown]

NARRATIVE: CASE EVENT DATE: 20240604
